FAERS Safety Report 14649593 (Version 1)
Quarter: 2018Q1

REPORT INFORMATION
  Report Type: Spontaneous
  Country: US (occurrence: US)
  Receive Date: 20180316
  Receipt Date: 20180316
  Transmission Date: 20180509
  Serious: No
  Sender: FDA-Public Use
  Company Number: US-009507513-1803USA000259

PATIENT
  Sex: Female

DRUGS (1)
  1. GANIRELIX ACETATE. [Suspect]
     Active Substance: GANIRELIX ACETATE
     Route: 058

REACTIONS (5)
  - Product quality issue [Unknown]
  - Syringe issue [Unknown]
  - Incorrect dose administered [Unknown]
  - No adverse event [Unknown]
  - Needle issue [Unknown]
